FAERS Safety Report 8166593-6 (Version None)
Quarter: 2012Q1

REPORT INFORMATION
  Report Type: 
  Country: None (occurrence: None)
  Receive Date: 20120227
  Receipt Date: 20120213
  Transmission Date: 20120608
  Serious: Yes (Hospitalization)
  Sender: FDA-Public Use
  Company Number: GB-MYLANLABS-2012S1003386

PATIENT
  Age: 89 Year
  Sex: Female

DRUGS (4)
  1. TRIMETHOPRIM [Concomitant]
     Indication: URINARY TRACT INFECTION
     Dosage: 100MG DAILY
     Route: 065
  2. FLUOXETINE HCL [Suspect]
     Dosage: 20MG DAILY
     Route: 048
  3. RAMIPRIL [Concomitant]
     Dosage: 2.5MG DAILY
     Route: 065
  4. CLARITHROMYCIN [Interacting]
     Indication: RESPIRATORY TRACT INFECTION
     Route: 048

REACTIONS (2)
  - SEROTONIN SYNDROME [None]
  - DRUG INTERACTION [None]
